FAERS Safety Report 19084320 (Version 1)
Quarter: 2021Q2

REPORT INFORMATION
  Report Type: Spontaneous
  Country: CN (occurrence: CN)
  Receive Date: 20210401
  Receipt Date: 20210401
  Transmission Date: 20210717
  Serious: Yes (Other)
  Sender: FDA-Public Use
  Company Number: CN-GLAXOSMITHKLINE-CN2021APC070633

PATIENT
  Age: 7 Year
  Sex: Female
  Weight: 21 kg

DRUGS (8)
  1. SODIUM CHLORIDE INJECTION SOLUTION [Concomitant]
     Indication: PRODUCT USED FOR UNKNOWN INDICATION
     Dosage: 1 ML, TID
     Dates: start: 20210316, end: 20210318
  2. ATROVENT [Suspect]
     Active Substance: IPRATROPIUM BROMIDE
     Indication: DYSPNOEA
     Dosage: 250 UG, TID
     Route: 055
     Dates: start: 20210316, end: 20210318
  3. ACETYLCYSTEINE NEBULIZER [Concomitant]
     Indication: PNEUMONIA
     Dosage: UNK
     Dates: start: 20210316
  4. VENTOLIN [Suspect]
     Active Substance: ALBUTEROL SULFATE
     Indication: DYSPNOEA
     Dosage: 1.25 MG, TID
     Route: 055
     Dates: start: 20210316, end: 20210318
  5. VENTOLIN [Suspect]
     Active Substance: ALBUTEROL SULFATE
     Indication: BRONCHIAL DISORDER
  6. CEFUROXIME SODIUM. [Concomitant]
     Active Substance: CEFUROXIME SODIUM
     Indication: ANTI-INFECTIVE THERAPY
     Dosage: UNK
     Dates: start: 20210316
  7. VITAMIN C [Concomitant]
     Active Substance: ASCORBIC ACID
     Indication: ANTIPYRESIS
     Dosage: UNK
     Dates: start: 20210316
  8. AMBROXOL [Concomitant]
     Active Substance: AMBROXOL
     Indication: PNEUMONIA
     Dosage: UNK
     Dates: start: 20210316

REACTIONS (6)
  - Balance disorder [Recovered/Resolved]
  - Altered state of consciousness [Recovering/Resolving]
  - Chest discomfort [Recovering/Resolving]
  - Palpitations [Recovering/Resolving]
  - Dyskinesia [Recovered/Resolved]
  - Nausea [Recovering/Resolving]

NARRATIVE: CASE EVENT DATE: 20210318
